FAERS Safety Report 14418525 (Version 1)
Quarter: 2018Q1

REPORT INFORMATION
  Report Type: Spontaneous
  Country: US (occurrence: US)
  Receive Date: 20180119
  Receipt Date: 20180119
  Transmission Date: 20180509
  Serious: Yes (Life-Threatening, Hospitalization)
  Sender: FDA-Public Use
  Company Number: None

PATIENT
  Sex: Male
  Weight: 6.7 kg

DRUGS (12)
  1. SABRIL [Suspect]
     Active Substance: VIGABATRIN
     Indication: INFANTILE SPASMS
  2. BANZEL [Concomitant]
     Active Substance: RUFINAMIDE
  3. VIMPAT [Concomitant]
     Active Substance: LACOSAMIDE
  4. GENOTROPIN [Concomitant]
     Active Substance: SOMATROPIN
  5. POLY-VI-SOL WITH IRON [Concomitant]
     Active Substance: IRON\VITAMINS
  6. CLONAZEPAM. [Concomitant]
     Active Substance: CLONAZEPAM
  7. NG TUBE 8FR [Concomitant]
  8. SABRIL [Suspect]
     Active Substance: VIGABATRIN
     Indication: STATUS EPILEPTICUS
  9. KEPPRA [Concomitant]
     Active Substance: LEVETIRACETAM
  10. HYDROCORTISONE. [Concomitant]
     Active Substance: HYDROCORTISONE
  11. ZANTAC [Concomitant]
     Active Substance: RANITIDINE HYDROCHLORIDE
  12. SOLU-CORTEF [Concomitant]
     Active Substance: HYDROCORTISONE SODIUM SUCCINATE

REACTIONS (1)
  - Encephalopathy [None]
